FAERS Safety Report 18045344 (Version 1)
Quarter: 2020Q3

REPORT INFORMATION
  Report Type: Spontaneous
  Country: DK (occurrence: DK)
  Receive Date: 20200720
  Receipt Date: 20200720
  Transmission Date: 20201103
  Serious: Yes (Hospitalization)
  Sender: FDA-Public Use
  Company Number: NVSC2020DK201521

PATIENT
  Age: 69 Year
  Sex: Female

DRUGS (10)
  1. POTASSIUM CHLORIDE. [Concomitant]
     Active Substance: POTASSIUM CHLORIDE
     Indication: MINERAL SUPPLEMENTATION
     Dosage: 1 DF, UNKNOWN (STYRKE: 75 MG/ML OG 750 MGDOSIS: VARIATION I FORM)
     Route: 048
     Dates: start: 20191207
  2. PANTOPRAZOLE [Concomitant]
     Active Substance: PANTOPRAZOLE
     Indication: PROPHYLAXIS AGAINST GASTROINTESTINAL ULCER
     Dosage: 80 MG, QD (STYRKE: 40 MG)
     Route: 048
     Dates: start: 20191203
  3. VIBEDEN [Concomitant]
     Indication: VITAMIN B12 DEFICIENCY
     Dosage: 1 ML, Q3MO (STYRKE: 1 MG/ML)
     Route: 030
     Dates: start: 20200212
  4. CALCIUM OG D?VITAMIN [Concomitant]
     Indication: MINERAL SUPPLEMENTATION
     Dosage: 2 DF, QD (STYRKE: 400 MG + 19 ?G)
     Route: 048
     Dates: start: 20200129
  5. FERROUS FUMARATE [Concomitant]
     Active Substance: FERROUS FUMARATE
     Indication: MINERAL SUPPLEMENTATION
     Dosage: 1 DF, QD (STYRKE: 100+60 MG)
     Route: 048
     Dates: start: 20200130
  6. LINEZOLID. [Suspect]
     Active Substance: LINEZOLID
     Indication: ENDOCARDITIS
     Dosage: 1 DF, UNKNOWN, (STYRKE: 600 MG DOSIS: STARTDOSIS 600 MG X 2. D. 23MAJ2020, 600 MG MORGEN, 300 MG AFT
     Route: 048
     Dates: start: 20200515, end: 20200612
  7. FUROSEMIDE. [Concomitant]
     Active Substance: FUROSEMIDE
     Indication: DIURETIC THERAPY
     Dosage: 160 MG, QD (STYRKE: 40 MG)
     Route: 048
     Dates: start: 20200513
  8. ZINC SULFATE. [Concomitant]
     Active Substance: ZINC SULFATE
     Indication: MINERAL SUPPLEMENTATION
     Dosage: 22 MG, QD (STYRKE: 22 MG)
     Route: 048
     Dates: start: 20200507
  9. CREON [Concomitant]
     Active Substance: PANCRELIPASE AMYLASE\PANCRELIPASE LIPASE\PANCRELIPASE PROTEASE
     Indication: STEATORRHOEA
     Dosage: 1 DF, UNKNOWN (STYRKE: LIPASE 40.000 EP?E OG LIPASE 25.000 EP?EDOSIS: 40.000 3XDGL + 25.000 EFTER BE
     Route: 048
     Dates: start: 20200131
  10. AMOXICILLIN. [Concomitant]
     Active Substance: AMOXICILLIN
     Indication: ENDOCARDITIS
     Dosage: 3000 MG, QD (STYRKE: 500 MG)
     Route: 048
     Dates: start: 20200515, end: 20200612

REACTIONS (2)
  - Pancytopenia [Recovering/Resolving]
  - Discomfort [Recovering/Resolving]

NARRATIVE: CASE EVENT DATE: 202006
